FAERS Safety Report 14341989 (Version 9)
Quarter: 2019Q2

REPORT INFORMATION
  Report Type: Spontaneous
  Country: FR (occurrence: FR)
  Receive Date: 20180102
  Receipt Date: 20190529
  Transmission Date: 20190711
  Serious: Yes (Hospitalization, Other)
  Sender: FDA-Public Use
  Company Number: FR-MYLANLABS-2017M1083210

PATIENT
  Age: 85 Year
  Sex: Female
  Weight: 68 kg

DRUGS (23)
  1. PERINDOPRIL ARGININE BIOGARAN [Suspect]
     Active Substance: PERINDOPRIL ARGININE
     Dosage: UNK, QD (UNK, EVERY NIGHT AROUND 07:00 PM)
     Route: 048
     Dates: start: 2017
  2. ASPIRINE [Concomitant]
     Active Substance: ASPIRIN
     Indication: POSTOPERATIVE CARE
     Dosage: 100 MG, QD
  3. RILMENIDINE [Interacting]
     Active Substance: RILMENIDINE
     Indication: HYPERTENSION
     Dosage: UNK
     Route: 048
     Dates: start: 2007
  4. PARACETAMOL/TRAMADOL [Suspect]
     Active Substance: ACETAMINOPHEN\TRAMADOL
     Indication: ARTHRALGIA
     Dosage: UNK
     Route: 048
  5. TARAMADOL [Suspect]
     Active Substance: ACETAMINOPHEN\TRAMADOL HYDROCHLORIDE
     Indication: ARTHRALGIA
     Dosage: UNK
     Route: 065
  6. ALTIZIDE W/SPIRONOLACTONE [Concomitant]
     Active Substance: ALTHIAZIDE\SPIRONOLACTONE
     Indication: HYPERTENSION
  7. ASPIRIN PROTECT [Concomitant]
     Active Substance: ASPIRIN
     Indication: STENT PLACEMENT
     Dosage: UNK
  8. PERINDOPRIL [Interacting]
     Active Substance: PERINDOPRIL
     Indication: HYPERTENSION
     Dosage: UNK, EVERY NIGHT AROUND 7.00 PM
     Route: 065
  9. PERINDOPRIL [Interacting]
     Active Substance: PERINDOPRIL
     Dosage: 5 MG, QD, IN THE EVENING
     Route: 048
     Dates: start: 2016
  10. SPIRONOLACTONE. [Interacting]
     Active Substance: SPIRONOLACTONE
     Dosage: 1 DF, QD
     Dates: start: 20160101
  11. PERINDOPRIL [Interacting]
     Active Substance: PERINDOPRIL
     Dosage: 1 DF, QD
     Route: 065
     Dates: start: 20170101
  12. PERINDOPRIL ARGININE BIOGARAN [Suspect]
     Active Substance: PERINDOPRIL ARGININE
     Indication: HYPERTENSION
     Dosage: 5 MG, QD
     Route: 048
     Dates: start: 20160101
  13. PERINDOPRIL ARGININE BIOGARAN [Suspect]
     Active Substance: PERINDOPRIL ARGININE
     Dosage: 5 MG, QD IN THE EVENING
     Route: 048
     Dates: start: 2016
  14. ASPIRINE [Concomitant]
     Active Substance: ASPIRIN
     Indication: STENT PLACEMENT
  15. RILMENIDINE [Interacting]
     Active Substance: RILMENIDINE
     Dosage: UNK
     Route: 048
     Dates: start: 2017
  16. RILMENIDINE [Interacting]
     Active Substance: RILMENIDINE
     Dosage: UNK
     Route: 065
  17. NISISCO [Concomitant]
     Active Substance: HYDROCHLOROTHIAZIDE\VALSARTAN
     Indication: HYPERTENSION
     Dosage: UNK
     Route: 065
  18. SPIRONOLACTONE. [Suspect]
     Active Substance: SPIRONOLACTONE
     Indication: HYPERTENSION
     Dosage: UNK, IN MORNING
     Route: 065
  19. ALDACTAZINE [Concomitant]
     Active Substance: ALTHIAZIDE\SPIRONOLACTONE
     Indication: HYPERTENSION
     Dosage: 1 DF, QD
     Route: 048
     Dates: start: 2016
  20. NEBIVOLOL. [Interacting]
     Active Substance: NEBIVOLOL
     Indication: HYPERTENSION
     Dosage: UNK
     Route: 048
  21. SPIRONOLACTONE. [Interacting]
     Active Substance: SPIRONOLACTONE
     Dosage: 25 MG, QD, PRN IN THE MORNING
     Route: 048
     Dates: start: 2016
  22. VALSARTAN HYDROCHLOROTHIAZIDE KRKA [Concomitant]
     Active Substance: HYDROCHLOROTHIAZIDE\VALSARTAN
     Indication: HYPERTENSION
  23. ASPIRIN PROTECT [Concomitant]
     Active Substance: ASPIRIN
     Indication: POSTOPERATIVE CARE
     Dosage: 100 MILLIGRAM, QD
     Route: 065

REACTIONS (20)
  - Palpitations [Unknown]
  - Nausea [Unknown]
  - Respiratory disorder [Unknown]
  - Acute kidney injury [Unknown]
  - Product use issue [Not Recovered/Not Resolved]
  - Abdominal pain [Unknown]
  - Diarrhoea [Unknown]
  - Myalgia [Not Recovered/Not Resolved]
  - Asthma [Unknown]
  - Vasculitis [Unknown]
  - Arthralgia [Unknown]
  - Cough [Unknown]
  - Dyspnoea [Unknown]
  - Tachycardia [Unknown]
  - Medication error [Unknown]
  - Urine output increased [Not Recovered/Not Resolved]
  - Fatigue [Unknown]
  - Feeling hot [Unknown]
  - Labelled drug-drug interaction medication error [Unknown]
  - Drug ineffective [Unknown]

NARRATIVE: CASE EVENT DATE: 2016
